FAERS Safety Report 18440895 (Version 6)
Quarter: 2020Q4

REPORT INFORMATION
  Report Type: Spontaneous
  Country: US (occurrence: US)
  Receive Date: 20201029
  Receipt Date: 20201223
  Transmission Date: 20210114
  Serious: No
  Sender: FDA-Public Use
  Company Number: US-PFIZER INC-2020417607

PATIENT
  Age: 36 Year
  Sex: Female

DRUGS (1)
  1. EUCRISA [Suspect]
     Active Substance: CRISABOROLE
     Indication: RASH
     Dosage: UNK, 2X/DAY (APPLY A THIN LAYER TO THE RASHY AREAS AROUND THE EYES AND ON THE HANDS)
     Route: 061

REACTIONS (2)
  - Off label use [Unknown]
  - Rash pruritic [Unknown]
